FAERS Safety Report 5717852-5 (Version None)
Quarter: 2008Q2

REPORT INFORMATION
  Report Type: 
  Country: None (occurrence: None)
  Receive Date: 20080425
  Receipt Date: 20080415
  Transmission Date: 20081010
  Serious: Yes (Hospitalization)
  Sender: FDA-Public Use
  Company Number: FR-JNJFOC-20080404231

PATIENT
  Age: 62 Year
  Sex: Male

DRUGS (6)
  1. OFLOCET [Suspect]
     Indication: PROSTATITIS
     Route: 048
  2. AUGMENTIN '125' [Suspect]
     Indication: ERYSIPELAS
     Route: 048
  3. RABEPRAZOLE SODIUM [Concomitant]
     Indication: GASTRIC ULCER
     Route: 048
  4. ZOLOFT [Concomitant]
     Route: 048
  5. AVLOCARDYL [Concomitant]
     Route: 048
  6. VITAMINS B1 AND B6 [Concomitant]
     Route: 048

REACTIONS (5)
  - AGRANULOCYTOSIS [None]
  - EOSINOPHIL COUNT DECREASED [None]
  - HAEMOGLOBIN DECREASED [None]
  - LEUKOPENIA [None]
  - THROMBOCYTOPENIA [None]
